FAERS Safety Report 8338438 (Version 4)
Quarter: 2013Q4

REPORT INFORMATION
  Report Type: Spontaneous
  Country: GB (occurrence: GB)
  Receive Date: 20120117
  Receipt Date: 20131002
  Transmission Date: 20140711
  Serious: Yes (Other)
  Sender: FDA-Public Use
  Company Number: GB-TEVA-317161ISR

PATIENT
  Age: 17 Year
  Sex: Female
  Weight: 54 kg

DRUGS (5)
  1. LAMOTRIGINE [Suspect]
     Indication: EPILEPSY
     Dosage: 400 MILLIGRAM DAILY;
     Route: 048
     Dates: start: 201011
  2. NEXPLANON [Interacting]
     Indication: CONTRACEPTION
     Route: 059
     Dates: start: 201103
  3. KEPPRA [Suspect]
     Indication: PRODUCT USED FOR UNKNOWN INDICATION
     Route: 065
  4. LORATADINE [Concomitant]
     Indication: SEASONAL ALLERGY
     Dosage: 10 MILLIGRAM DAILY; ONGOING
     Route: 048
     Dates: start: 201105
  5. DOXYCYCLINE [Concomitant]
     Indication: SINUSITIS
     Route: 048

REACTIONS (3)
  - Epilepsy [Not Recovered/Not Resolved]
  - Drug interaction [Not Recovered/Not Resolved]
  - Convulsion [Unknown]
